FAERS Safety Report 6791594-X (Version None)
Quarter: 2010Q2

REPORT INFORMATION
  Report Type: 
  Country: None (occurrence: None)
  Receive Date: 20100624
  Receipt Date: 20090604
  Transmission Date: 20101027
  Serious: Yes (Other)
  Sender: FDA-Public Use
  Company Number: US-PFIZER INC-2008058191

PATIENT
  Sex: Female
  Weight: 61 kg

DRUGS (2)
  1. PREMARIN [Suspect]
     Indication: HORMONE REPLACEMENT THERAPY
     Dosage: UNK
     Dates: start: 20011221, end: 20060523
  2. LEVOXYL [Concomitant]
     Indication: THYROID DISORDER
     Dosage: UNK
     Dates: start: 20000101

REACTIONS (1)
  - BREAST CANCER FEMALE [None]
